FAERS Safety Report 20845385 (Version 1)
Quarter: 2022Q2

REPORT INFORMATION
  Report Type: Other
  Country: US (occurrence: None)
  Receive Date: 20220518
  Receipt Date: 20220518
  Transmission Date: 20220721
  Serious: No
  Sender: FDA-Public Use
  Company Number: US-ROCHE-3096891

PATIENT
  Sex: Female
  Weight: 65.830 kg

DRUGS (16)
  1. OCREVUS [Suspect]
     Active Substance: OCRELIZUMAB
     Indication: Progressive relapsing multiple sclerosis
     Dosage: STARTED ABOUT 2 YEARS AGO,
     Route: 042
  2. OCREVUS [Suspect]
     Active Substance: OCRELIZUMAB
     Dosage: HALF DOSES FOR HER LAST 2 DOSES
     Route: 042
     Dates: end: 202102
  3. ALPRAZOLAM [Concomitant]
     Active Substance: ALPRAZOLAM
  4. BACLOFEN [Concomitant]
     Active Substance: BACLOFEN
  5. BUPROPION [Concomitant]
     Active Substance: BUPROPION
  6. DONEPEZIL [Concomitant]
     Active Substance: DONEPEZIL
  7. LEVOTHYROXINE [Concomitant]
     Active Substance: LEVOTHYROXINE
  8. MYRBETRIQ [Concomitant]
     Active Substance: MIRABEGRON
  9. ASPIRIN [Concomitant]
     Active Substance: ASPIRIN
  10. CALCIUM CARBONATE [Concomitant]
     Active Substance: CALCIUM CARBONATE
  11. VITAMIN D3 [Concomitant]
     Active Substance: CHOLECALCIFEROL
  12. FOLIC ACID [Concomitant]
     Active Substance: FOLIC ACID
  13. NIACIN [Concomitant]
     Active Substance: NIACIN
  14. FISH OIL [Concomitant]
     Active Substance: FISH OIL
  15. OMEGA-3 FATTY ACIDS [Concomitant]
     Active Substance: OMEGA-3 FATTY ACIDS
  16. PFIZER-BIONTECH COVID-19 VACCINE [Concomitant]
     Active Substance: TOZINAMERAN

REACTIONS (2)
  - Viral test positive [Unknown]
  - Off label use [Recovered/Resolved]
